FAERS Safety Report 7720517-1 (Version None)
Quarter: 2011Q3

REPORT INFORMATION
  Report Type: 
  Country: None (occurrence: None)
  Receive Date: 20110831
  Receipt Date: 20110820
  Transmission Date: 20111222
  Serious: Yes (Hospitalization)
  Sender: FDA-Public Use
  Company Number: DE-UCBSA-039795

PATIENT
  Sex: Male
  Weight: 80 kg

DRUGS (2)
  1. KEPPRA [Suspect]
     Dosage: 500MG TABLETS 30-40 TABLETS
     Route: 048
     Dates: start: 20110820
  2. METOPROLOL SUCCINATE [Suspect]
     Dosage: 47.5: TOTAL AMOUNT: 1425MG - ORAL INTAKE - NOT ASSURED
     Dates: start: 20110820

REACTIONS (2)
  - SOMNOLENCE [None]
  - ACCIDENTAL EXPOSURE [None]
